FAERS Safety Report 4485121-X (Version None)
Quarter: 2004Q4

REPORT INFORMATION
  Report Type: 
  Country: None (occurrence: None)
  Receive Date: 20041026
  Receipt Date: 20031028
  Transmission Date: 20050328
  Serious: No
  Sender: FDA-Public Use
  Company Number: US-BRISTOL-MYERS SQUIBB COMPANY-12422143

PATIENT

DRUGS (1)
  1. GLUCOPHAGE XR [Suspect]
     Dosage: 2000MG - 2500MG

REACTIONS (1)
  - ANAEMIA VITAMIN B12 DEFICIENCY [None]
